FAERS Safety Report 10231445 (Version 1)
Quarter: 2014Q2

REPORT INFORMATION
  Report Type: Spontaneous
  Country: DE (occurrence: DE)
  Receive Date: 20140611
  Receipt Date: 20140611
  Transmission Date: 20141212
  Serious: Yes (Other)
  Sender: FDA-Public Use
  Company Number: DE-WATSON-2014-12975

PATIENT
  Age: 47 Year
  Sex: Male

DRUGS (4)
  1. CITALOPRAM (UNKNOWN) [Suspect]
     Indication: PRODUCT USED FOR UNKNOWN INDICATION
     Dosage: UNK UNK, UNKNOWN
     Route: 065
  2. MIRTAZAPINE [Concomitant]
     Indication: PRODUCT USED FOR UNKNOWN INDICATION
     Dosage: 45 MG, DAILY
     Route: 048
     Dates: start: 20121220
  3. MIRTAZAPINE [Concomitant]
     Dosage: 30 MG, DAILY
     Route: 048
     Dates: start: 20121210, end: 20121219
  4. MIRTAZAPINE [Concomitant]
     Dosage: 15 MG, DAILY
     Route: 048
     Dates: end: 20121209

REACTIONS (5)
  - Depression [Unknown]
  - Agitation [Recovered/Resolved]
  - Restlessness [Unknown]
  - Anxiety [Unknown]
  - Pain [Unknown]
